FAERS Safety Report 26132101 (Version 1)
Quarter: 2025Q4

REPORT INFORMATION
  Report Type: Spontaneous
  Country: US (occurrence: None)
  Receive Date: 20251208
  Receipt Date: 20251208
  Transmission Date: 20260118
  Serious: Yes (Hospitalization)
  Sender: FDA-CTU
  Company Number: None

PATIENT
  Age: 54 Year
  Sex: Female

DRUGS (6)
  1. SKYRIZI [Suspect]
     Active Substance: RISANKIZUMAB-RZAA
     Indication: Crohn^s disease
     Dosage: INJECT 360 MG UNDER THE SKIN (SUBCUTANEOUS INJECTION) EVERY 8 WEEKS
     Route: 058
     Dates: start: 20250115
  2. BUDESONIDE POW [Concomitant]
  3. LISINOPRIL [Concomitant]
     Active Substance: LISINOPRIL
  4. OMEPRAZOLE [Concomitant]
     Active Substance: OMEPRAZOLE
  5. ROPINROLE ER [Concomitant]
  6. TERIFLUNOMIDE [Concomitant]
     Active Substance: TERIFLUNOMIDE

REACTIONS (1)
  - Rash [None]

NARRATIVE: CASE EVENT DATE: 20251203
